FAERS Safety Report 11875283 (Version 1)
Quarter: 2015Q4

REPORT INFORMATION
  Report Type: Spontaneous
  Country: US (occurrence: None)
  Receive Date: 20151228
  Receipt Date: 20151228
  Transmission Date: 20160305
  Serious: Yes (Other)
  Sender: FDA-Public Use
  Company Number: None

PATIENT
  Age: 78 Year
  Sex: Female

DRUGS (1)
  1. ADCIRCA [Suspect]
     Active Substance: TADALAFIL
     Indication: HYPERTENSION
     Route: 048
     Dates: start: 20150701

REACTIONS (2)
  - Cough [None]
  - Haemoptysis [None]

NARRATIVE: CASE EVENT DATE: 20151209
